FAERS Safety Report 5629259-X (Version None)
Quarter: 2008Q1

REPORT INFORMATION
  Report Type: 
  Country: None (occurrence: None)
  Receive Date: 20080217
  Receipt Date: 20080125
  Transmission Date: 20080703
  Serious: No
  Sender: FDA-Public Use
  Company Number: US-BAXTER-2008BH000805

PATIENT
  Age: 69 Year
  Sex: Male
  Weight: 88 kg

DRUGS (2)
  1. HEPARIN SODIUM [Suspect]
     Indication: PROPHYLAXIS
     Dosage: DOSE UNIT:CUBIC CENTIMETER
     Route: 033
     Dates: start: 20070101, end: 20071201
  2. DIANEAL [Concomitant]
     Indication: PERITONEAL DIALYSIS
     Route: 033

REACTIONS (5)
  - ABDOMINAL PAIN UPPER [None]
  - DECREASED APPETITE [None]
  - DIZZINESS [None]
  - DIZZINESS POSTURAL [None]
  - NAUSEA [None]
